FAERS Safety Report 16489239 (Version 1)
Quarter: 2019Q2

REPORT INFORMATION
  Report Type: Spontaneous
  Country: US (occurrence: US)
  Receive Date: 20190628
  Receipt Date: 20190628
  Transmission Date: 20190711
  Serious: No
  Sender: FDA-Public Use
  Company Number: US-ACCORD-092749

PATIENT
  Age: 70 Year
  Sex: Male

DRUGS (1)
  1. CLONAZEPAM ACCORD [Suspect]
     Active Substance: CLONAZEPAM
     Indication: ANXIETY
     Dosage: STRENGTH: 1 MG
     Dates: start: 20181012

REACTIONS (11)
  - Product substitution issue [Unknown]
  - Muscle spasms [Unknown]
  - Insomnia [Unknown]
  - Nervousness [Unknown]
  - Asthenia [Unknown]
  - Dizziness [Unknown]
  - Product quality issue [Unknown]
  - Withdrawal syndrome [Unknown]
  - Headache [Unknown]
  - Feeling abnormal [Unknown]
  - Myalgia [Unknown]
